FAERS Safety Report 6440372-X (Version None)
Quarter: 2009Q4

REPORT INFORMATION
  Report Type: 
  Country: None (occurrence: None)
  Receive Date: 20091113
  Receipt Date: 20091030
  Transmission Date: 20100525
  Serious: Yes (Other)
  Sender: FDA-Public Use
  Company Number: US-BAUSCH-2009BL005518

PATIENT
  Age: 80 Year
  Sex: Female

DRUGS (2)
  1. BESIVANCE [Suspect]
     Indication: ANTIBIOTIC PROPHYLAXIS
     Route: 047
     Dates: start: 20091009, end: 20091015
  2. BESIVANCE [Suspect]
     Indication: OFF LABEL USE
     Route: 047
     Dates: start: 20091009, end: 20091015

REACTIONS (3)
  - CORNEAL EPITHELIUM DEFECT [None]
  - HYPOPYON [None]
  - ULCERATIVE KERATITIS [None]
